FAERS Safety Report 6020623-6 (Version None)
Quarter: 2008Q4

REPORT INFORMATION
  Report Type: 
  Country: None (occurrence: None)
  Receive Date: 20081222
  Receipt Date: 20081211
  Transmission Date: 20090506
  Serious: Yes (Other)
  Sender: FDA-Public Use
  Company Number: 6047683

PATIENT
  Age: 56 Year
  Sex: Male

DRUGS (2)
  1. BISOPROLOL FUMARATE [Suspect]
     Indication: INFARCTION
     Dosage: ORAL
     Route: 048
     Dates: start: 19950101
  2. CRESTOR [Suspect]
     Indication: DRUG USE FOR UNKNOWN INDICATION
     Dosage: ORAL
     Route: 048
     Dates: end: 20080911

REACTIONS (5)
  - ALOPECIA [None]
  - ARTHRALGIA [None]
  - CUTANEOUS LUPUS ERYTHEMATOSUS [None]
  - MYALGIA [None]
  - PROTEINURIA [None]
